FAERS Safety Report 5835387-6 (Version None)
Quarter: 2008Q3

REPORT INFORMATION
  Report Type: 
  Country: None (occurrence: None)
  Receive Date: 20080806
  Receipt Date: 20080731
  Transmission Date: 20090109
  Serious: Yes (Other)
  Sender: FDA-Public Use
  Company Number: GB-MERCK-0808GBR00003

PATIENT
  Sex: Male

DRUGS (4)
  1. ISENTRESS [Suspect]
     Indication: HIV INFECTION
     Route: 048
  2. TRUVADA [Concomitant]
     Route: 065
  3. ETRAVIRINE [Concomitant]
     Route: 065
  4. KEPPRA [Concomitant]
     Indication: EPILEPSY
     Route: 065

REACTIONS (1)
  - CONVULSION [None]
